FAERS Safety Report 25078883 (Version 1)
Quarter: 2025Q1

REPORT INFORMATION
  Report Type: Spontaneous
  Country: GB (occurrence: GB)
  Receive Date: 20250314
  Receipt Date: 20250314
  Transmission Date: 20250408
  Serious: Yes (Disabling, Other)
  Sender: MYLAN
  Company Number: None

PATIENT
  Age: 29 Year
  Sex: Male
  Weight: 70 kg

DRUGS (2)
  1. SERTRALINE [Suspect]
     Active Substance: SERTRALINE HYDROCHLORIDE
     Indication: Abdominal pain upper
     Dosage: 50 MILLIGRAM, QD (50MG ONCE A DAY)
     Dates: start: 20210922
  2. SERTRALINE [Suspect]
     Active Substance: SERTRALINE HYDROCHLORIDE

REACTIONS (10)
  - Medication error [Unknown]
  - Scrotal angiokeratoma [Not Recovered/Not Resolved]
  - Amnesia [Recovered/Resolved with Sequelae]
  - Electric shock sensation [Recovered/Resolved with Sequelae]
  - Sexual dysfunction [Not Recovered/Not Resolved]
  - Headache [Recovering/Resolving]
  - Withdrawal syndrome [Recovered/Resolved]
  - Dizziness [Recovered/Resolved with Sequelae]
  - Pyrexia [Not Recovered/Not Resolved]
  - Off label use [Unknown]

NARRATIVE: CASE EVENT DATE: 20221201
